FAERS Safety Report 9334652 (Version 3)
Quarter: 2015Q1

REPORT INFORMATION
  Report Type: Spontaneous
  Country: US (occurrence: US)
  Receive Date: 20130606
  Receipt Date: 20150324
  Transmission Date: 20150721
  Serious: Yes (Other)
  Sender: FDA-Public Use
  Company Number: US-AMGEN-USASP2013023897

PATIENT
  Age: 87 Year
  Sex: Female

DRUGS (21)
  1. PROBIOTIC                          /06395501/ [Concomitant]
  2. MULTIVITAMIN                       /00097801/ [Concomitant]
     Active Substance: VITAMINS
  3. ESTRACE [Concomitant]
     Active Substance: ESTRADIOL
     Dosage: UNK UNK, 2 TIMES/WK
  4. SIMVASTATIN. [Concomitant]
     Active Substance: SIMVASTATIN
  5. NIZATIDINE. [Concomitant]
     Active Substance: NIZATIDINE
     Dosage: 300 MG, BID
  6. SIMVASTATIN. [Concomitant]
     Active Substance: SIMVASTATIN
     Dosage: 10 MG, QD
  7. LOSARTAN [Concomitant]
     Active Substance: LOSARTAN
  8. FIBER [Concomitant]
     Active Substance: PSYLLIUM HUSK
     Dosage: UNK UNK, QHS
  9. SUCRALFATE. [Concomitant]
     Active Substance: SUCRALFATE
  10. COENZYME A [Concomitant]
     Active Substance: COENZYME A
     Dosage: 100 MG, UNK
  11. PRILOSEC [Concomitant]
     Active Substance: OMEPRAZOLE MAGNESIUM
  12. NEXIUM [Concomitant]
     Active Substance: ESOMEPRAZOLE MAGNESIUM
  13. ESTRACE [Concomitant]
     Active Substance: ESTRADIOL
  14. OMEPRAZOLE. [Concomitant]
     Active Substance: OMEPRAZOLE
  15. NIZATIDINE. [Concomitant]
     Active Substance: NIZATIDINE
  16. SUCRALFATE. [Concomitant]
     Active Substance: SUCRALFATE
     Dosage: UNK UNK, QHS
  17. COQ10                              /00517201/ [Concomitant]
  18. PROLIA [Suspect]
     Active Substance: DENOSUMAB
     Indication: OSTEOPOROSIS POSTMENOPAUSAL
     Dosage: 60 MG, UNK
     Route: 065
     Dates: start: 20130305
  19. LOSARTAN [Concomitant]
     Active Substance: LOSARTAN
     Dosage: UNK UNK, QD
  20. MIRALAX [Concomitant]
     Active Substance: POLYETHYLENE GLYCOL 3350
     Dosage: UNK UNK, AS NECESSARY
  21. PEPCID                             /00305201/ [Concomitant]
     Active Substance: ALUMINUM HYDROXIDE\MAGNESIUM CARBONATE
     Indication: GASTROOESOPHAGEAL REFLUX DISEASE

REACTIONS (17)
  - Contusion [Unknown]
  - Rash [Unknown]
  - Peripheral vascular disorder [Unknown]
  - Burning sensation [Unknown]
  - Nightmare [Unknown]
  - Drug interaction [Unknown]
  - Peripheral artery stenosis [Unknown]
  - Pain [Unknown]
  - Gastrooesophageal reflux disease [Unknown]
  - Night sweats [Unknown]
  - Back pain [Unknown]
  - Productive cough [Unknown]
  - Wound complication [Unknown]
  - Angiopathy [Unknown]
  - Joint stiffness [Unknown]
  - Wound [Unknown]
  - Impaired healing [Unknown]
